FAERS Safety Report 8278290-7 (Version None)
Quarter: 2012Q2

REPORT INFORMATION
  Report Type: 
  Country: None (occurrence: None)
  Receive Date: 20120412
  Receipt Date: 20120228
  Transmission Date: 20120825
  Serious: No
  Sender: FDA-Public Use
  Company Number: US-ASTRAZENECA-2011SE46187

PATIENT
  Age: 63 Year
  Sex: Male
  Weight: 65.8 kg

DRUGS (3)
  1. GENERIC MEDICATION [Suspect]
     Indication: BACK PAIN
     Route: 065
     Dates: start: 20090101
  2. NEXIUM [Suspect]
     Route: 048
  3. SEROQUEL [Suspect]
     Indication: SLEEP DISORDER
     Route: 048
     Dates: start: 20090101

REACTIONS (6)
  - MUSCULAR WEAKNESS [None]
  - DRUG PRESCRIBING ERROR [None]
  - GASTROOESOPHAGEAL REFLUX DISEASE [None]
  - VOMITING [None]
  - ABDOMINAL DISCOMFORT [None]
  - DRUG DOSE OMISSION [None]
